FAERS Safety Report 5389393-9 (Version None)
Quarter: 2007Q3

REPORT INFORMATION
  Report Type: 
  Country: None (occurrence: None)
  Receive Date: 20070713
  Receipt Date: 20070713
  Transmission Date: 20080115
  Serious: Yes (Hospitalization)
  Sender: FDA-Public Use
  Company Number: None

PATIENT
  Age: 69 Year
  Sex: Male

DRUGS (2)
  1. LISINOPRIL [Suspect]
     Indication: CORONARY ARTERY DISEASE
     Dosage: 20MG EVERY DAY PO
     Route: 048
     Dates: start: 20070618, end: 20070620
  2. LISINOPRIL [Suspect]
     Indication: ISCHAEMIC CARDIOMYOPATHY
     Dosage: 20MG EVERY DAY PO
     Route: 048
     Dates: start: 20070618, end: 20070620

REACTIONS (2)
  - RENAL FAILURE ACUTE [None]
  - RENAL TUBULAR NECROSIS [None]
